FAERS Safety Report 8803518 (Version 1)
Quarter: 2012Q4

REPORT INFORMATION
  Report Type: 
  Country: IT (occurrence: IT)
  Receive Date: 20120924
  Receipt Date: 20120924
  Transmission Date: 20130627
  Serious: Yes (Hospitalization)
  Sender: FDA-Public Use
  Company Number: IT-CELGENEUS-083-20785-12090598

PATIENT
  Age: 55 Year
  Sex: Male

DRUGS (3)
  1. THALIDOMIDE [Suspect]
     Indication: MULTIPLE MYELOMA
     Dosage: 100 Milligram
     Route: 048
     Dates: start: 20120730, end: 20120829
  2. VELCADE [Concomitant]
     Indication: MULTIPLE MYELOMA
     Route: 041
     Dates: start: 20110730, end: 20120829
  3. DEXAMETHASONE [Concomitant]
     Indication: MULTIPLE MYELOMA
     Route: 065

REACTIONS (1)
  - Demyelinating polyneuropathy [Recovered/Resolved]
